FAERS Safety Report 7118315-5 (Version None)
Quarter: 2010Q4

REPORT INFORMATION
  Report Type: 
  Country: None (occurrence: None)
  Receive Date: 20101123
  Receipt Date: 20101117
  Transmission Date: 20110411
  Serious: Yes (Death)
  Sender: FDA-Public Use
  Company Number: DE-JNJFOC-20101004397

PATIENT
  Sex: Male
  Weight: 52.6 kg

DRUGS (3)
  1. CONCERTA [Suspect]
     Indication: ATTENTION DEFICIT/HYPERACTIVITY DISORDER
     Route: 048
  2. OXCARBAZEPINE [Concomitant]
     Indication: EPILEPSY
     Route: 048
     Dates: start: 20050602, end: 20081014
  3. OXCARBAZEPINE [Concomitant]
     Indication: PARTIAL SEIZURES
     Route: 048
     Dates: start: 20050602, end: 20081014

REACTIONS (2)
  - CONVULSION [None]
  - DEATH [None]
